FAERS Safety Report 17256397 (Version 1)
Quarter: 2020Q1

REPORT INFORMATION
  Report Type: Spontaneous
  Country: US (occurrence: US)
  Receive Date: 20200110
  Receipt Date: 20200110
  Transmission Date: 20200409
  Serious: No
  Sender: FDA-Public Use
  Company Number: US-TORRENT-00009593

PATIENT
  Age: 60 Year
  Sex: Male
  Weight: 104 kg

DRUGS (2)
  1. SILDENAFIL. [Suspect]
     Active Substance: SILDENAFIL
     Indication: SEXUAL DYSFUNCTION
     Dosage: BLUE SILDENAFIL FOR 4 TABLET IN A WEEK
     Route: 048
     Dates: start: 20180927
  2. SILDENAFIL? [Concomitant]
     Indication: SEXUAL DYSFUNCTION
     Dosage: UNKNOWN

REACTIONS (3)
  - Dry mouth [Unknown]
  - Thirst [Unknown]
  - Dry throat [Unknown]

NARRATIVE: CASE EVENT DATE: 20191214
